FAERS Safety Report 5445883-1 (Version None)
Quarter: 2007Q3

REPORT INFORMATION
  Report Type: 
  Country: None (occurrence: None)
  Receive Date: 20070907
  Receipt Date: 20070828
  Transmission Date: 20080115
  Serious: Yes (Other)
  Sender: FDA-Public Use
  Company Number: PHBS2007US14320

PATIENT
  Age: 46 Year
  Sex: Female
  Weight: 60 kg

DRUGS (5)
  1. CLOZAPINE [Suspect]
     Indication: AFFECT LABILITY
     Dosage: 500 MG/DAY
  2. RISPERIDONE [Suspect]
     Indication: PSYCHOTIC DISORDER
     Dosage: 2 MG/DAY
  3. RISPERIDONE [Suspect]
     Dosage: 1.5 MG/DAY
  4. CLONIDINE [Suspect]
     Indication: AGGRESSION
     Dosage: 0.3 MG/DAY
  5. BENZTROPEINE [Suspect]
     Indication: DROOLING
     Dosage: 1 MG/DAY

REACTIONS (4)
  - ABNORMAL BEHAVIOUR [None]
  - BREATH SOUNDS ABNORMAL [None]
  - DROOLING [None]
  - DYSPHAGIA [None]
